FAERS Safety Report 24378234 (Version 1)
Quarter: 2024Q3

REPORT INFORMATION
  Report Type: Spontaneous
  Country: GR (occurrence: GR)
  Receive Date: 20240930
  Receipt Date: 20240930
  Transmission Date: 20241016
  Serious: Yes (Other)
  Sender: SHILPA MEDICARE
  Company Number: GR-002147023-PHHY2017GR180759

PATIENT
  Age: 62 Year
  Sex: Female

DRUGS (34)
  1. GEMCITABINE [Suspect]
     Active Substance: GEMCITABINE
     Indication: Breast cancer metastatic
     Dosage: 1 DOSAGE FORM, CYCLIC (1 - EVERY CYCLE, COMBINATION WITH TRASTUZUMAB AND CARBOPLATIN)
     Route: 006
     Dates: start: 2009
  2. GEMCITABINE [Suspect]
     Active Substance: GEMCITABINE
     Indication: Recurrent cancer
  3. TAMOXIFEN CITRATE [Suspect]
     Active Substance: TAMOXIFEN CITRATE
     Indication: Breast cancer metastatic
     Dosage: 1 DOSAGE FORM, CYCLIC (1-EVERY CYCLE, REGIMEN#1, COMBINATION WITH TRASTUZUMAB)
     Dates: start: 2009
  4. TAMOXIFEN CITRATE [Suspect]
     Active Substance: TAMOXIFEN CITRATE
     Indication: Recurrent cancer
  5. EXEMESTANE [Suspect]
     Active Substance: EXEMESTANE
     Indication: Breast cancer metastatic
     Dosage: 1 DF, CYCLIC (COMBINATION WITH TRASTZUMAB AND EVEROLIMUS, 1- EVERY CYCLE)
     Route: 065
     Dates: start: 2009
  6. EXEMESTANE [Suspect]
     Active Substance: EXEMESTANE
     Indication: Recurrent cancer
  7. DOCETAXEL [Suspect]
     Active Substance: DOCETAXEL
     Indication: Recurrent cancer
     Dosage: 1 DF, CYCLIC (1 - EVERY CYCLE, REGIMEN#1)
     Route: 065
     Dates: start: 2009
  8. DOCETAXEL [Suspect]
     Active Substance: DOCETAXEL
     Indication: Breast cancer metastatic
  9. LAPATINIB [Suspect]
     Active Substance: LAPATINIB
     Indication: Breast cancer metastatic
     Dosage: 1 DOSAGE FORM, CYCLIC (1 - EVERY CYCLE, REGIMEN#1, COMBINATION WITH CAPECITABINE)
     Route: 065
     Dates: start: 2009
  10. LAPATINIB [Suspect]
     Active Substance: LAPATINIB
     Indication: Recurrent cancer
  11. CAPECITABINE [Suspect]
     Active Substance: CAPECITABINE
     Indication: Breast cancer metastatic
     Dosage: 1 DOSAGE FORM, CYCLIC (REGIMEN#1, COMBINATION WITH LAPATINIB, 1 - EVERY CYCLE)
     Route: 065
     Dates: start: 2009
  12. CAPECITABINE [Suspect]
     Active Substance: CAPECITABINE
     Indication: Recurrent cancer
  13. PACLITAXEL [Suspect]
     Active Substance: PACLITAXEL
     Indication: Breast cancer metastatic
     Dosage: 1 DF, CYCLIC (1 - EVERY CYCLE, REGIMEN#1)
     Route: 065
     Dates: start: 2006
  14. CYCLOPHOSPHAMIDE [Suspect]
     Active Substance: CYCLOPHOSPHAMIDE
     Indication: Breast cancer metastatic
     Dosage: 1 DOSAGE FORM, CYCLIC (1 - EVERY CYCLE REGIMEN#1)
     Route: 065
  15. EPIRUBICIN HYDROCHLORIDE [Suspect]
     Active Substance: EPIRUBICIN HYDROCHLORIDE
     Indication: Breast cancer metastatic
     Dosage: 1 DOSAGE FORM, CYCLIC (1 - EVERY CYCLE, REGIMEN#1)
     Route: 065
     Dates: start: 2006
  16. CARBOPLATIN [Suspect]
     Active Substance: CARBOPLATIN
     Indication: Recurrent cancer
     Dosage: 1 DOSAGE FORM, CYCLIC (1 - EVERY CYCLE, COMBINATION WITH TRASTUZUMAB AND GEMCITABINE)
     Route: 065
     Dates: start: 2009
  17. CARBOPLATIN [Suspect]
     Active Substance: CARBOPLATIN
     Indication: Breast cancer metastatic
  18. ADO-TRASTUZUMAB EMTANSINE [Suspect]
     Active Substance: ADO-TRASTUZUMAB EMTANSINE
     Indication: Breast cancer metastatic
     Dosage: 1 DOSAGE FORM, CYCLIC (1 - EVERY CYCLE, REGIMEN#1)
     Route: 065
     Dates: start: 2009
  19. ADO-TRASTUZUMAB EMTANSINE [Suspect]
     Active Substance: ADO-TRASTUZUMAB EMTANSINE
     Indication: Recurrent cancer
  20. VINORELBINE [Suspect]
     Active Substance: VINORELBINE TARTRATE
     Indication: Recurrent cancer
     Dosage: 1 DOSAGE FORM, CYCLIC (1-EVERY CYCLE, REGIMEN#1, COMBINATION WITH TRASTUZUMAB)
     Route: 065
     Dates: start: 2009
  21. VINORELBINE [Suspect]
     Active Substance: VINORELBINE TARTRATE
     Indication: Breast cancer metastatic
  22. CYCLOPHOSPHAMIDE [Suspect]
     Active Substance: CYCLOPHOSPHAMIDE
     Indication: Breast cancer metastatic
     Dosage: UNK
     Route: 065
  23. TRASTUZUMAB [Suspect]
     Active Substance: TRASTUZUMAB
     Indication: Breast cancer metastatic
     Dosage: 1 DOSAGE FORM, CYCLIC (1-EVERY CYCLE, COMBINATION WITH TAMOXIFEN)
     Route: 065
     Dates: start: 2009
  24. TRASTUZUMAB [Suspect]
     Active Substance: TRASTUZUMAB
     Indication: Recurrent cancer
  25. FLUOROURACIL [Suspect]
     Active Substance: FLUOROURACIL
     Indication: Breast cancer metastatic
     Dosage: 1 DOSAGE FORM, CYCLIC (1-EVERY CYCLE, REGIMEN#1)
     Route: 065
     Dates: start: 2006
  26. FULVESTRANT [Suspect]
     Active Substance: FULVESTRANT
     Indication: Recurrent cancer
     Dosage: 1 DOSAGE FORM, CYCLIC (1 - EVERY CYCLE, REGIMEN#1, COMBINATION WITH TRASTUZUMAB)
     Dates: start: 2009
  27. FULVESTRANT [Suspect]
     Active Substance: FULVESTRANT
     Indication: Breast cancer metastatic
  28. METHOTREXATE SODIUM [Suspect]
     Active Substance: METHOTREXATE SODIUM
     Indication: Breast cancer metastatic
     Dosage: UNK, (REGIMEN #1)
     Route: 065
     Dates: start: 2006
  29. DOXORUBICIN HYDROCHLORIDE [Suspect]
     Active Substance: DOXORUBICIN HYDROCHLORIDE
     Indication: Recurrent cancer
     Dosage: 1 DOSAGE FORM, QD (1 - EVERY CYCLE, REGIMEN#1, COMBINATION WITH TRASTUZUMAB)
     Route: 065
     Dates: start: 2009
  30. DOXORUBICIN HYDROCHLORIDE [Suspect]
     Active Substance: DOXORUBICIN HYDROCHLORIDE
     Indication: Breast cancer metastatic
  31. EVEROLIMUS [Suspect]
     Active Substance: EVEROLIMUS
     Indication: Recurrent cancer
     Dosage: 1 DOSAGE FORM, CYCLIC (1 - EVERY CYCLE, REGIMEN#1, COMBINATION WITH TRASTZUMAB AND EXEMESTANE)
     Route: 065
     Dates: start: 2009
  32. EVEROLIMUS [Suspect]
     Active Substance: EVEROLIMUS
     Indication: Breast cancer metastatic
  33. ERIBULIN [Suspect]
     Active Substance: ERIBULIN
     Indication: Recurrent cancer
     Dosage: 1 DOSAGE FORM, CYCLIC (REGIMEN#1, COMBINATION WITH TRASTUZUMAB, 1 - EVERY CYCLE)
     Route: 065
     Dates: start: 2009
  34. ERIBULIN [Suspect]
     Active Substance: ERIBULIN
     Indication: Breast cancer metastatic

REACTIONS (8)
  - Recurrent cancer [Unknown]
  - Metastases to skin [Unknown]
  - Hormone receptor positive breast cancer [Unknown]
  - Metastases to lymph nodes [Unknown]
  - Malignant neoplasm progression [Unknown]
  - Metastases to bone [Unknown]
  - Skin mass [Unknown]
  - Metastases to lung [Unknown]

NARRATIVE: CASE EVENT DATE: 20090101
